FAERS Safety Report 18978929 (Version 1)
Quarter: 2021Q1

REPORT INFORMATION
  Report Type: Spontaneous
  Country: PL (occurrence: PL)
  Receive Date: 20210308
  Receipt Date: 20210308
  Transmission Date: 20210420
  Serious: Yes (Other)
  Sender: FDA-Public Use
  Company Number: PL-ROCHE-2776427

PATIENT

DRUGS (3)
  1. HEPA MERZ (ORNITHINE ASPARTATE) [Suspect]
     Active Substance: ORNITHINE ASPARTATE
     Indication: PRODUCT USED FOR UNKNOWN INDICATION
     Route: 065
  2. TAXOL [Suspect]
     Active Substance: PACLITAXEL
     Indication: PRODUCT USED FOR UNKNOWN INDICATION
     Route: 065
  3. HERCEPTIN [Suspect]
     Active Substance: TRASTUZUMAB
     Indication: PRODUCT USED FOR UNKNOWN INDICATION
     Route: 065

REACTIONS (3)
  - Weight increased [Unknown]
  - Liver disorder [Unknown]
  - Mental disorder [Unknown]
